FAERS Safety Report 10062726 (Version 2)
Quarter: 2014Q2

REPORT INFORMATION
  Report Type: Spontaneous
  Country: BR (occurrence: BR)
  Receive Date: 20140407
  Receipt Date: 20140529
  Transmission Date: 20141212
  Serious: Yes (Hospitalization)
  Sender: FDA-Public Use
  Company Number: BR-GLAXOSMITHKLINE-A1068151A

PATIENT
  Sex: Female

DRUGS (14)
  1. SERETIDE [Suspect]
     Indication: LARYNGITIS ALLERGIC
     Dosage: 1PUFF PER DAY
     Route: 048
     Dates: start: 201112
  2. MOTILIUM [Suspect]
     Indication: ILL-DEFINED DISORDER
     Dosage: 4.5ML TWICE PER DAY
     Route: 048
     Dates: start: 201112
  3. RANITIDINE [Suspect]
     Indication: OESOPHAGITIS
     Dosage: 4.5ML TWICE PER DAY
     Route: 048
     Dates: start: 201112
  4. UNKNOWN MEDICATION [Suspect]
     Indication: LUNG DISORDER
     Dosage: 2.5ML PER DAY
     Route: 048
     Dates: start: 201112
  5. POLYVITAMIN [Suspect]
     Indication: PROPHYLAXIS
     Dosage: 2ML PER DAY
     Route: 048
     Dates: start: 201112
  6. SINGULAIR [Suspect]
     Indication: LUNG DISORDER
     Dosage: 1TAB PER DAY
     Route: 048
     Dates: start: 201112
  7. NASONEX [Suspect]
     Indication: NASAL CONGESTION
     Route: 045
     Dates: start: 201112
  8. DECADRON [Concomitant]
  9. LEVODROPROPIZINE [Concomitant]
  10. CLOPERASTINE [Concomitant]
  11. AFRIN [Concomitant]
  12. CLENIL A [Concomitant]
  13. FUCICORT [Concomitant]
  14. UNKNOWN MEDICATION [Concomitant]

REACTIONS (2)
  - Asthmatic crisis [Recovered/Resolved]
  - Product quality issue [Unknown]
